APPROVED DRUG PRODUCT: OLANZAPINE
Active Ingredient: OLANZAPINE
Strength: 2.5MG
Dosage Form/Route: TABLET;ORAL
Application: A206711 | Product #001
Applicant: AJANTA PHARMA LTD
Approved: Aug 30, 2016 | RLD: No | RS: No | Type: DISCN